FAERS Safety Report 4986994-4 (Version None)
Quarter: 2006Q2

REPORT INFORMATION
  Report Type: 
  Country: None (occurrence: None)
  Receive Date: 20060501
  Receipt Date: 20060426
  Transmission Date: 20061013
  Serious: Yes (Other)
  Sender: FDA-Public Use
  Company Number: GB-BOEHRINGER INGELHEIM PHARMACEUTICALS, INC.-2006-UK-02253UK

PATIENT
  Age: 3 Year
  Sex: Male
  Weight: 11.52 kg

DRUGS (1)
  1. CLONIDINE [Suspect]
     Route: 048
     Dates: start: 20060328, end: 20060328

REACTIONS (1)
  - GRAND MAL CONVULSION [None]
